FAERS Safety Report 6968002-9 (Version None)
Quarter: 2010Q3

REPORT INFORMATION
  Report Type: 
  Country: None (occurrence: None)
  Receive Date: 20100907
  Receipt Date: 20100825
  Transmission Date: 20110219
  Serious: Yes (Other)
  Sender: FDA-Public Use
  Company Number: A0879142A

PATIENT
  Age: 67 Year
  Sex: Female

DRUGS (2)
  1. AVANDIA [Suspect]
     Dosage: 4MG TWICE PER DAY
     Dates: start: 20050201, end: 20080401
  2. AVANDAMET [Suspect]
     Dosage: 1TAB PER DAY
     Dates: start: 20050201, end: 20050101

REACTIONS (3)
  - ANAEMIA [None]
  - MACULAR OEDEMA [None]
  - RENAL DISORDER [None]
